FAERS Safety Report 24354108 (Version 2)
Quarter: 2025Q3

REPORT INFORMATION
  Report Type: Spontaneous
  Country: US (occurrence: US)
  Receive Date: 20240923
  Receipt Date: 20250913
  Transmission Date: 20251021
  Serious: No
  Sender: SANDOZ
  Company Number: US-SANDOZ-SDZ2024US081384

PATIENT

DRUGS (5)
  1. ADALIMUMAB [Suspect]
     Active Substance: ADALIMUMAB
     Indication: Product used for unknown indication
     Route: 065
  2. COSENTYX [Suspect]
     Active Substance: SECUKINUMAB
     Indication: Product used for unknown indication
     Route: 065
  3. METHOTREXATE [Suspect]
     Active Substance: METHOTREXATE
     Indication: Product used for unknown indication
     Route: 065
  4. PREDNISOLONE [Suspect]
     Active Substance: PREDNISOLONE
     Indication: Product used for unknown indication
     Route: 065
  5. RINVOQ [Suspect]
     Active Substance: UPADACITINIB
     Indication: Product used for unknown indication
     Route: 065

REACTIONS (11)
  - Abnormal dreams [Unknown]
  - Mood swings [Unknown]
  - Anger [Not Recovered/Not Resolved]
  - Nightmare [Unknown]
  - Anxiety [Not Recovered/Not Resolved]
  - Anxiety [Unknown]
  - Ill-defined disorder [Unknown]
  - Acne [Unknown]
  - Limb discomfort [Unknown]
  - Condition aggravated [Unknown]
  - Drug ineffective [Unknown]
